FAERS Safety Report 19369046 (Version 3)
Quarter: 2021Q3

REPORT INFORMATION
  Report Type: Report from Study
  Country: CA (occurrence: CA)
  Receive Date: 20210603
  Receipt Date: 20210915
  Transmission Date: 20211014
  Serious: Yes (Hospitalization, Other)
  Sender: FDA-Public Use
  Company Number: CA-JNJFOC-20210600636

PATIENT
  Age: 50 Year
  Sex: Female
  Weight: 92 kg

DRUGS (1)
  1. REMICADE [Suspect]
     Active Substance: INFLIXIMAB
     Indication: CROHN^S DISEASE
     Dosage: 01/JAN/2007, DOSE TAKEN ON 04?JUN?2010
     Route: 042
     Dates: start: 20061001

REACTIONS (7)
  - Ear infection [Not Recovered/Not Resolved]
  - Incorrect dose administered [Unknown]
  - Fungal infection [Recovering/Resolving]
  - Staphylococcal infection [Not Recovered/Not Resolved]
  - Off label use [Unknown]
  - Rhinitis [Not Recovered/Not Resolved]
  - Uveitis [Not Recovered/Not Resolved]

NARRATIVE: CASE EVENT DATE: 20210526
